FAERS Safety Report 10053718 (Version 1)
Quarter: 2014Q2

REPORT INFORMATION
  Report Type: Report from Study
  Country: BR (occurrence: BR)
  Receive Date: 20140402
  Receipt Date: 20140402
  Transmission Date: 20141212
  Serious: Yes (Other)
  Sender: FDA-Public Use
  Company Number: PHHY2014BR038932

PATIENT
  Age: 36 Year
  Sex: Male
  Weight: 63 kg

DRUGS (1)
  1. GILENYA [Suspect]
     Indication: MULTIPLE SCLEROSIS
     Dosage: 1 DF, QD
     Route: 048
     Dates: start: 20140318

REACTIONS (2)
  - Blood pressure decreased [Unknown]
  - Fatigue [Not Recovered/Not Resolved]
